FAERS Safety Report 4522487-6 (Version None)
Quarter: 2004Q4

REPORT INFORMATION
  Report Type: 
  Country: None (occurrence: None)
  Receive Date: 20041207
  Receipt Date: 20041124
  Transmission Date: 20050328
  Serious: Yes (Hospitalization, Other)
  Sender: FDA-Public Use
  Company Number: US_0411108616

PATIENT
  Age: 35 Year
  Sex: Female

DRUGS (4)
  1. OLANZAPINE [Suspect]
     Indication: BIPOLAR DISORDER
     Dosage: 10 MG DAY
  2. BENZTROPINE MESYLATE [Concomitant]
  3. VALPROIC ACID [Concomitant]
  4. HYDROCHLOROTHIAZIDE [Concomitant]

REACTIONS (23)
  - ACUTE PRERENAL FAILURE [None]
  - BETA HAEMOLYTIC STREPTOCOCCAL INFECTION [None]
  - BLOOD CREATININE INCREASED [None]
  - BLOOD SODIUM INCREASED [None]
  - BLOOD UREA INCREASED [None]
  - CHILLS [None]
  - COMA [None]
  - ELECTROCARDIOGRAM T WAVE PEAKED [None]
  - HEADACHE [None]
  - HYPERGLYCAEMIC HYPEROSMOLAR NONKETOTIC SYNDROME [None]
  - HYPERHIDROSIS [None]
  - MIOSIS [None]
  - OXYGEN SATURATION DECREASED [None]
  - PANCREATITIS [None]
  - PROTEIN URINE PRESENT [None]
  - PYREXIA [None]
  - SEPSIS [None]
  - SINUS TACHYCARDIA [None]
  - SPUTUM CULTURE POSITIVE [None]
  - THERAPY NON-RESPONDER [None]
  - URINE KETONE BODY PRESENT [None]
  - VISION BLURRED [None]
  - WHITE BLOOD CELL COUNT INCREASED [None]
